FAERS Safety Report 7278536-8 (Version None)
Quarter: 2011Q1

REPORT INFORMATION
  Report Type: 
  Country: None (occurrence: None)
  Receive Date: 20110207
  Receipt Date: 20110127
  Transmission Date: 20110831
  Serious: Yes (Other)
  Sender: FDA-Public Use
  Company Number: JP-JNJFOC-20100203811

PATIENT
  Sex: Male
  Weight: 57 kg

DRUGS (20)
  1. OMEPRAZOLE [Concomitant]
     Route: 048
  2. REMICADE [Suspect]
     Route: 042
  3. REMICADE [Suspect]
     Route: 042
  4. REMICADE [Suspect]
     Route: 042
  5. REMICADE [Suspect]
     Route: 042
  6. RHEUMATREX [Suspect]
     Route: 048
  7. PREDNISOLONE [Concomitant]
     Indication: RHEUMATOID ARTHRITIS
     Route: 048
  8. SOLETON [Concomitant]
     Indication: RHEUMATOID ARTHRITIS
     Route: 048
  9. REMICADE [Suspect]
     Indication: RHEUMATOID ARTHRITIS
     Route: 042
  10. REMICADE [Suspect]
     Route: 042
  11. REMICADE [Suspect]
     Route: 042
  12. RHEUMATREX [Suspect]
     Route: 048
  13. VOGLIBOSE [Concomitant]
     Indication: DIABETES MELLITUS
     Route: 048
  14. REMICADE [Suspect]
     Route: 042
  15. RHEUMATREX [Suspect]
     Route: 048
  16. RHEUMATREX [Suspect]
     Route: 048
  17. GLIMICRON [Concomitant]
     Route: 048
  18. AMLODIPINE [Concomitant]
     Indication: HYPERTENSION
     Route: 048
  19. NAFTOPIDIL [Concomitant]
     Indication: BENIGN PROSTATIC HYPERPLASIA
     Route: 048
  20. RHEUMATREX [Suspect]
     Indication: RHEUMATOID ARTHRITIS
     Route: 048

REACTIONS (1)
  - B-CELL LYMPHOMA [None]
